FAERS Safety Report 25892853 (Version 1)
Quarter: 2025Q4

REPORT INFORMATION
  Report Type: Spontaneous
  Country: US (occurrence: US)
  Receive Date: 20251007
  Receipt Date: 20251007
  Transmission Date: 20260117
  Serious: No
  Sender: BAUSCH AND LOMB
  Company Number: US-BAUSCHBL-2025BNL029538

PATIENT
  Sex: Male

DRUGS (10)
  1. DEXAMETHASONE SODIUM PHOSPHATE [Suspect]
     Active Substance: DEXAMETHASONE SODIUM PHOSPHATE
     Indication: Mast cell activation syndrome
  2. NALTREXONE [Suspect]
     Active Substance: NALTREXONE
     Indication: Mast cell activation syndrome
     Dosage: LOW-DOSE
  3. CANNABIS SATIVA SUBSP. INDICA TOP [Suspect]
     Active Substance: CANNABIS SATIVA SUBSP. INDICA TOP
     Indication: Mast cell activation syndrome
  4. HISTAMINE [Suspect]
     Active Substance: HISTAMINE
     Indication: Mast cell activation syndrome
  5. QUERCETIN [Suspect]
     Active Substance: QUERCETIN
     Indication: Mast cell activation syndrome
  6. ASPIRIN [Suspect]
     Active Substance: ASPIRIN
     Indication: Mast cell activation syndrome
  7. MONTELUKAST [Suspect]
     Active Substance: MONTELUKAST
     Indication: Mast cell activation syndrome
  8. CROMOLYN [Concomitant]
     Active Substance: CROMOLYN
     Indication: Mast cell activation syndrome
     Route: 048
  9. CROMOLYN [Concomitant]
     Active Substance: CROMOLYN
     Route: 045
  10. LORAZEPAM [Concomitant]
     Active Substance: LORAZEPAM
     Dosage: (STABLE LOW DOSING, NO SIGN OF ADDICTION

REACTIONS (1)
  - Therapy non-responder [Unknown]
